FAERS Safety Report 13285459 (Version 3)
Quarter: 2018Q2

REPORT INFORMATION
  Report Type: Report from Study
  Country: US (occurrence: US)
  Receive Date: 20170301
  Receipt Date: 20180405
  Transmission Date: 20180711
  Serious: No
  Sender: FDA-Public Use
  Company Number: PHEH2017US006211

PATIENT
  Sex: Female

DRUGS (1)
  1. GILENYA [Suspect]
     Active Substance: FINGOLIMOD HYDROCHLORIDE
     Indication: SYSTEMIC LUPUS ERYTHEMATOSUS
     Dosage: 0.5 MG, QD
     Route: 048

REACTIONS (5)
  - Fall [Unknown]
  - Head injury [Unknown]
  - Product use in unapproved indication [Unknown]
  - Balance disorder [Unknown]
  - Alopecia [Unknown]
